FAERS Safety Report 14970112 (Version 1)
Quarter: 2018Q2

REPORT INFORMATION
  Report Type: Spontaneous
  Country: IL (occurrence: US)
  Receive Date: 20180604
  Receipt Date: 20180604
  Transmission Date: 20180711
  Serious: Yes (Other)
  Sender: FDA-Public Use
  Company Number: IL-TEVA-2018-IL-894656

PATIENT
  Age: 81 Year
  Sex: Female

DRUGS (2)
  1. OPTALGIN [Suspect]
     Active Substance: METAMIZOLE
     Indication: ARTHRALGIA
     Route: 065
  2. ASPIRIN. [Concomitant]
     Active Substance: ASPIRIN

REACTIONS (1)
  - Renal impairment [Unknown]
